FAERS Safety Report 16928505 (Version 2)
Quarter: 2019Q4

REPORT INFORMATION
  Report Type: Spontaneous
  Country: CH (occurrence: CH)
  Receive Date: 20191017
  Receipt Date: 20191029
  Transmission Date: 20200122
  Serious: Yes (Hospitalization)
  Sender: FDA-Public Use
  Company Number: CH-TEVA-2019-CH-1121871

PATIENT
  Age: 77 Year
  Sex: Male

DRUGS (13)
  1. AMITRIPTYLINE [Suspect]
     Active Substance: AMITRIPTYLINE
     Dosage: IN THE EVENING
     Route: 065
  2. BISOPROLOL CORAX [Concomitant]
     Active Substance: BISOPROLOL
     Dosage: IN THE MORNING
     Route: 065
  3. ALLOPURINOL. [Concomitant]
     Active Substance: ALLOPURINOL
     Dosage: IN THE EVENING
     Route: 065
  4. METFORMIN [Concomitant]
     Active Substance: METFORMIN HYDROCHLORIDE
     Dosage: IN THE EVENING AND AT MIDDAY
     Route: 065
  5. RAMIPRIL. [Concomitant]
     Active Substance: RAMIPRIL
     Dosage: IN THE EVENING
     Route: 065
  6. VENLAFAXINE [Suspect]
     Active Substance: VENLAFAXINE HYDROCHLORIDE
     Dosage: IN THE MORNING
     Route: 065
  7. L-THYROXINE [Concomitant]
     Active Substance: LEVOTHYROXINE
     Dosage: IN THE MORNING
     Route: 065
  8. GABAPENTIN. [Suspect]
     Active Substance: GABAPENTIN
     Dosage: THREE TIMES A DAY (IN THE MORNING, AT MIDDAY AND IN THE EVENING)
     Route: 065
  9. COLCHICUM DISPERT [Concomitant]
     Dosage: IN THE MORNING AND EVENING
     Route: 065
  10. PARACETAMOL [Concomitant]
     Active Substance: ACETAMINOPHEN
     Dosage: IN THE EVENING AND AT MIDDAY
     Route: 065
  11. OMEPRAZOLE. [Suspect]
     Active Substance: OMEPRAZOLE
     Dosage: IN THE MORNING,
     Route: 065
  12. TILIDIN-N DURA [Suspect]
     Active Substance: NALOXONE HYDROCHLORIDE\TILIDINE HYDROCHLORIDE
     Dosage: TWO TIMES DAY (IN THE MORNING AND AT NIGHT), TILIDIN-N DURA
     Route: 065
  13. LORAZEPAM. [Suspect]
     Active Substance: LORAZEPAM
     Dosage: AT NIGHT
     Route: 065

REACTIONS (10)
  - Restlessness [Recovered/Resolved]
  - Anxiety [Recovered/Resolved]
  - Personality change [Recovered/Resolved]
  - Agitation [Recovered/Resolved]
  - Disorientation [Recovered/Resolved]
  - Fall [Recovered/Resolved]
  - Delirium [Recovered/Resolved]
  - Cognitive disorder [Recovered/Resolved]
  - Gait inability [Recovered/Resolved]
  - Hallucination, visual [Recovered/Resolved]
